FAERS Safety Report 5216029-X (Version None)
Quarter: 2006Q4

REPORT INFORMATION
  Report Type: 
  Country: None (occurrence: None)
  Receive Date: 20061122
  Receipt Date: 20060227
  Transmission Date: 20070319
  Serious: Yes (Other)
  Sender: FDA-Public Use
  Company Number: 2006028746

PATIENT
  Sex: Female
  Weight: 70.7611 kg

DRUGS (5)
  1. LIPITOR [Suspect]
     Indication: BLOOD CHOLESTEROL INCREASED
     Dosage: 10 MG (10 MG, 1 IN 1 D), ORAL
     Route: 048
  2. KLOR-CON [Concomitant]
  3. DARVOCET [Concomitant]
  4. SYNTHROID [Concomitant]
  5. ASPIRIN [Concomitant]

REACTIONS (3)
  - ARTHRITIS [None]
  - GLAUCOMA [None]
  - HYPERTENSION [None]
